FAERS Safety Report 7010319-6 (Version None)
Quarter: 2010Q3

REPORT INFORMATION
  Report Type: 
  Country: None (occurrence: None)
  Receive Date: 20100923
  Receipt Date: 20100917
  Transmission Date: 20110219
  Serious: Yes (Other)
  Sender: FDA-Public Use
  Company Number: B0674378A

PATIENT
  Age: 68 Year
  Sex: Female

DRUGS (2)
  1. RETROVIR [Suspect]
     Indication: HUMAN T-CELL LYMPHOTROPIC VIRUS TYPE I INFECTION
     Route: 048
     Dates: start: 20100601, end: 20100830
  2. FLUCONAZOLE [Suspect]
     Indication: ORAL FUNGAL INFECTION
     Route: 048
     Dates: start: 20100803, end: 20100812

REACTIONS (6)
  - BONE MARROW FAILURE [None]
  - DRUG INTERACTION [None]
  - MALAISE [None]
  - OFF LABEL USE [None]
  - ORAL FUNGAL INFECTION [None]
  - TONGUE DISCOLOURATION [None]
